FAERS Safety Report 13839155 (Version 1)
Quarter: 2017Q3

REPORT INFORMATION
  Report Type: Spontaneous
  Country: US (occurrence: US)
  Receive Date: 20170806
  Receipt Date: 20170806
  Transmission Date: 20171127
  Serious: No
  Sender: FDA-Public Use
  Company Number: None

PATIENT
  Age: 60 Year
  Sex: Female

DRUGS (9)
  1. ACIPHEX [Concomitant]
     Active Substance: RABEPRAZOLE SODIUM
  2. ESTRADIOL. [Concomitant]
     Active Substance: ESTRADIOL
  3. TYLENOL [Concomitant]
     Active Substance: ACETAMINOPHEN
  4. MOTRIN [Concomitant]
     Active Substance: IBUPROFEN
  5. NATURE-THROID [Concomitant]
     Active Substance: THYROID, PORCINE
  6. DYAZIDE [Concomitant]
     Active Substance: HYDROCHLOROTHIAZIDE\TRIAMTERENE
  7. PROGESTERONE. [Concomitant]
     Active Substance: PROGESTERONE
  8. LIPITOR [Concomitant]
     Active Substance: ATORVASTATIN CALCIUM
  9. GABAPENTIN CAPSULES [Suspect]
     Active Substance: GABAPENTIN
     Indication: SKIN DISCOMFORT
     Dosage: ?          QUANTITY:270 CAPSULE(S);?
     Route: 048
     Dates: start: 20170801, end: 20170805

REACTIONS (3)
  - Product substitution issue [None]
  - Nausea [None]
  - Therapy non-responder [None]

NARRATIVE: CASE EVENT DATE: 20170801
